FAERS Safety Report 24528721 (Version 1)
Quarter: 2024Q4

REPORT INFORMATION
  Report Type: Spontaneous
  Country: US (occurrence: US)
  Receive Date: 20241021
  Receipt Date: 20241021
  Transmission Date: 20250115
  Serious: Yes (Hospitalization, Other)
  Sender: DR REDDYS
  Company Number: US-DRL-USA-LIT/USA/24/0015432

PATIENT
  Age: 70 Year
  Sex: Female

DRUGS (4)
  1. SIROLIMUS [Suspect]
     Active Substance: SIROLIMUS
     Indication: Immunosuppressant drug therapy
     Dates: start: 202004
  2. TACROLIMUS [Suspect]
     Active Substance: TACROLIMUS
     Indication: Immunosuppressant drug therapy
  3. MYCOPHENOLATE MOFETIL [Suspect]
     Active Substance: MYCOPHENOLATE MOFETIL
     Indication: Immunosuppressant drug therapy
     Dates: end: 202004
  4. PREDNISONE [Suspect]
     Active Substance: PREDNISONE
     Indication: Immunosuppressant drug therapy

REACTIONS (8)
  - Pyelonephritis [Unknown]
  - Bacteraemia [Unknown]
  - Cystitis [Unknown]
  - Pneumonia klebsiella [Recovered/Resolved]
  - Acute kidney injury [Unknown]
  - Chronic kidney disease [Unknown]
  - Urinary tract infection [Unknown]
  - Sepsis [Unknown]
